FAERS Safety Report 6028139-8 (Version None)
Quarter: 2009Q1

REPORT INFORMATION
  Report Type: 
  Country: None (occurrence: None)
  Receive Date: 20090105
  Receipt Date: 20090105
  Transmission Date: 20090719
  Serious: Yes (Other)
  Sender: FDA-Public Use
  Company Number: None

PATIENT
  Sex: Female
  Weight: 58.9676 kg

DRUGS (2)
  1. PLAVIX [Suspect]
     Indication: STENT PLACEMENT
     Dosage: 75 MG 1 QD PO
     Route: 048
     Dates: start: 20081204
  2. PLAVIX [Suspect]
     Indication: STENT PLACEMENT
     Dosage: 75 MG 1 QD PO
     Route: 048
     Dates: start: 20081231

REACTIONS (4)
  - MOBILITY DECREASED [None]
  - MUSCULOSKELETAL PAIN [None]
  - MYALGIA [None]
  - PAIN IN EXTREMITY [None]
